FAERS Safety Report 9256258 (Version 1)
Quarter: 2013Q2

REPORT INFORMATION
  Report Type: Spontaneous
  Country: US (occurrence: US)
  Receive Date: 20130425
  Receipt Date: 20130425
  Transmission Date: 20140414
  Serious: No
  Sender: FDA-Public Use
  Company Number: US-AMGEN-USASP2012060787

PATIENT
  Sex: Male

DRUGS (6)
  1. NEULASTA [Suspect]
     Indication: CHEMOTHERAPY
     Dosage: UNK
     Dates: start: 201207
  2. RITUXIMAB [Concomitant]
     Indication: LYMPHOMA
     Dosage: UNK
  3. CYCLOPHOSPHAMIDE [Concomitant]
     Indication: LYMPHOMA
     Dosage: UNK
  4. DOXORUBICIN [Concomitant]
     Indication: LYMPHOMA
  5. VINCRISTINE [Concomitant]
     Indication: LYMPHOMA
     Dosage: UNK
  6. PREDNISONE [Concomitant]
     Indication: LYMPHOMA
     Dosage: UNK

REACTIONS (3)
  - Back pain [Unknown]
  - Fall [Unknown]
  - Fracture [Unknown]
